FAERS Safety Report 16476959 (Version 3)
Quarter: 2022Q4

REPORT INFORMATION
  Report Type: Report from Study
  Country: CA (occurrence: None)
  Receive Date: 20190626
  Receipt Date: 20221205
  Transmission Date: 20230113
  Serious: Yes (Hospitalization, Other)
  Sender: FDA-Public Use
  Company Number: CA-ORION CORPORATION ORION PHARMA-TREX2019-1975

PATIENT
  Age: 77 Year
  Sex: Female

DRUGS (9)
  1. METHOTREXATE [Suspect]
     Active Substance: METHOTREXATE
     Indication: Product used for unknown indication
     Route: 065
  2. COSENTYX [Suspect]
     Active Substance: SECUKINUMAB
     Indication: Psoriatic arthropathy
     Route: 058
  3. COSENTYX [Suspect]
     Active Substance: SECUKINUMAB
     Route: 058
  4. COSENTYX [Suspect]
     Active Substance: SECUKINUMAB
     Route: 058
  5. BETAMETHASONE DIPROPIONATE\CALCIPOTRIENE [Concomitant]
     Active Substance: BETAMETHASONE DIPROPIONATE\CALCIPOTRIENE
     Route: 065
  6. NAPROXEN [Concomitant]
     Active Substance: NAPROXEN
     Route: 065
  7. REMICADE [Concomitant]
     Active Substance: INFLIXIMAB
     Route: 065
  8. SIMPONI [Concomitant]
     Active Substance: GOLIMUMAB
     Route: 065
  9. KETOCONAZOLE [Concomitant]
     Active Substance: KETOCONAZOLE
     Route: 061

REACTIONS (6)
  - Asthenia [Not Recovered/Not Resolved]
  - Malaise [Not Recovered/Not Resolved]
  - Psoriatic arthropathy [Not Recovered/Not Resolved]
  - Illness [Not Recovered/Not Resolved]
  - Condition aggravated [Not Recovered/Not Resolved]
  - Rash [Not Recovered/Not Resolved]
